FAERS Safety Report 8184359-8 (Version None)
Quarter: 2012Q1

REPORT INFORMATION
  Report Type: 
  Country: None (occurrence: None)
  Receive Date: 20120305
  Receipt Date: 20120221
  Transmission Date: 20120608
  Serious: Yes (Hospitalization, Other)
  Sender: FDA-Public Use
  Company Number: US-ELI_LILLY_AND_COMPANY-US200910007691

PATIENT
  Sex: Male

DRUGS (11)
  1. IMIPRAMINE [Concomitant]
  2. SEROQUEL [Concomitant]
  3. ZYPREXA [Suspect]
     Dosage: 10 MG, QD
     Dates: start: 20031230
  4. DEPAKOTE [Concomitant]
  5. GEODON [Concomitant]
  6. ZYPREXA [Suspect]
     Dosage: 10 MG, EACH EVENING
  7. CLONAZEPAM [Concomitant]
  8. ZYPREXA [Suspect]
     Indication: DELUSIONAL DISORDER, PERSECUTORY TYPE
     Dosage: 5 MG, QD
     Dates: start: 19980205, end: 20010905
  9. PAXIL [Concomitant]
  10. ATIVAN [Concomitant]
  11. CITALOPRAM HYDROBROMIDE [Concomitant]

REACTIONS (9)
  - HYPERCHOLESTEROLAEMIA [None]
  - DRUG DOSE OMISSION [None]
  - HYPERTRIGLYCERIDAEMIA [None]
  - ALANINE AMINOTRANSFERASE INCREASED [None]
  - OSTEOMYELITIS [None]
  - CELLULITIS [None]
  - WEIGHT INCREASED [None]
  - CATARACT [None]
  - TYPE 2 DIABETES MELLITUS [None]
